FAERS Safety Report 5181518-3 (Version None)
Quarter: 2006Q4

REPORT INFORMATION
  Report Type: 
  Country: None (occurrence: None)
  Receive Date: 20061220
  Receipt Date: 20060124
  Transmission Date: 20070319
  Serious: No
  Sender: FDA-Public Use
  Company Number: US-GLAXOSMITHKLINE-A0590709A

PATIENT
  Age: 31 Year
  Sex: Male

DRUGS (1)
  1. COMMIT [Suspect]
     Dates: start: 20060122, end: 20060122

REACTIONS (4)
  - DIZZINESS [None]
  - DYSSTASIA [None]
  - ORAL DISCOMFORT [None]
  - TINNITUS [None]
